FAERS Safety Report 4779465-1 (Version None)
Quarter: 2005Q3

REPORT INFORMATION
  Report Type: 
  Country: None (occurrence: None)
  Receive Date: 20050923
  Receipt Date: 20050921
  Transmission Date: 20060218
  Serious: Yes (Death)
  Sender: FDA-Public Use
  Company Number: 216417

PATIENT
  Sex: Male

DRUGS (4)
  1. RITUXAN [Suspect]
     Indication: LYMPHOMA
     Dates: start: 20050401
  2. DEXAMETHASONE [Concomitant]
  3. CYTARABINE [Concomitant]
  4. CISPLATIN [Concomitant]

REACTIONS (1)
  - RENAL FAILURE [None]
